FAERS Safety Report 25585987 (Version 1)
Quarter: 2025Q3

REPORT INFORMATION
  Report Type: Spontaneous
  Country: US (occurrence: None)
  Receive Date: 20250720
  Receipt Date: 20250720
  Transmission Date: 20251021
  Serious: Yes (Hospitalization)
  Sender: FDA-CTU
  Company Number: None

PATIENT
  Sex: Female

DRUGS (1)
  1. DALFAMPRIDINE [Suspect]
     Active Substance: DALFAMPRIDINE
     Indication: Multiple sclerosis
     Dosage: FREQUENCY : TWICE A DAY;?
     Route: 048
     Dates: start: 20250131

REACTIONS (8)
  - Therapy cessation [None]
  - Vertigo [None]
  - Seizure [None]
  - Eye movement disorder [None]
  - Dyskinesia [None]
  - Dysphonia [None]
  - Hip fracture [None]
  - Therapy interrupted [None]
